FAERS Safety Report 4505888-1 (Version None)
Quarter: 2004Q4

REPORT INFORMATION
  Report Type: 
  Country: None (occurrence: None)
  Receive Date: 20041025
  Receipt Date: 20040713
  Transmission Date: 20050328
  Serious: Yes (Other)
  Sender: FDA-Public Use
  Company Number: US-JNJFOC-20040301308

PATIENT
  Age: 47 Year
  Sex: Female
  Weight: 99.3377 kg

DRUGS (19)
  1. REMICADE [Suspect]
     Indication: CROHN'S DISEASE
     Dosage: 5 + 500 MG/KG, INTRAVENOUS SEE IMAGE
     Route: 042
     Dates: start: 20040212
  2. REMICADE [Suspect]
     Indication: CROHN'S DISEASE
     Dosage: 5 + 500 MG/KG, INTRAVENOUS SEE IMAGE
     Route: 042
     Dates: start: 20040407
  3. REMICADE [Suspect]
  4. BENADRYL [Concomitant]
  5. ACETOMINOPHIN (ACETAMINOPHEN) CAPSULES [Concomitant]
  6. ASACOL (MESALAZINE) TABLETS [Concomitant]
  7. PURINETHOL (MERCAPTOPURINE) TABLETS [Concomitant]
  8. FLAGYL [Concomitant]
  9. AMBIEN [Concomitant]
  10. BENTYL (DICYCLOVERINE HYDROCHLORIDE) TABLETS [Concomitant]
  11. NEXIUM [Concomitant]
  12. LOPID [Concomitant]
  13. ESRATEST (ESTRATST HS) TABLETS [Concomitant]
  14. PROMETRIUM (PROGESTERONE) TABLETS [Concomitant]
  15. ASPIRIN [Concomitant]
  16. METAMUCIL (PSYLLIUM HYDROPHILIC MUCILLOID) POWDER [Concomitant]
  17. MEGA 3 FISH OIL (FISH OIL) GELCAPS [Concomitant]
  18. B 12 COMPLEX (VITAMIN B-COMPLEX) CAPSULES [Concomitant]
  19. PAXIL [Suspect]

REACTIONS (3)
  - PRURITUS [None]
  - RASH PUSTULAR [None]
  - THROMBOPHLEBITIS [None]
